FAERS Safety Report 23867508 (Version 1)
Quarter: 2024Q2

REPORT INFORMATION
  Report Type: Spontaneous
  Country: US (occurrence: US)
  Receive Date: 20240517
  Receipt Date: 20240517
  Transmission Date: 20240715
  Serious: Yes (Other)
  Sender: FDA-Public Use
  Company Number: US-PFIZER INC-PV202400063958

PATIENT
  Age: 47 Year
  Sex: Female
  Weight: 66.7 kg

DRUGS (4)
  1. IBRANCE [Suspect]
     Active Substance: PALBOCICLIB
     Indication: Breast cancer metastatic
     Dosage: 100 MG, TAKE 1 CAPSULE FOR 21 DAYS AND 7 DAYS OFF
     Route: 048
  2. IBRANCE [Suspect]
     Active Substance: PALBOCICLIB
     Dosage: UNK
     Dates: start: 201705
  3. IBRANCE [Suspect]
     Active Substance: PALBOCICLIB
     Dosage: UNK
     Dates: start: 201707
  4. FULVESTRANT [Suspect]
     Active Substance: FULVESTRANT
     Dosage: UNK, MONTHLY
     Dates: start: 2017

REACTIONS (1)
  - Neutropenia [Recovering/Resolving]
